FAERS Safety Report 6419402-7 (Version None)
Quarter: 2009Q4

REPORT INFORMATION
  Report Type: 
  Country: None (occurrence: None)
  Receive Date: 20091027
  Receipt Date: 20091012
  Transmission Date: 20100525
  Serious: Yes (Hospitalization, Other)
  Sender: FDA-Public Use
  Company Number: AUR-APL-2009-00889

PATIENT
  Age: 48 Year
  Sex: Female

DRUGS (2)
  1. ATENOLOL [Suspect]
     Indication: PALPITATIONS
     Dosage: 50MG, DAILY
     Dates: start: 20000101
  2. CHLOROQUINE [Suspect]
     Indication: SYSTEMIC LUPUS ERYTHEMATOSUS
     Dosage: 300MG, DAILY
     Dates: start: 20001001

REACTIONS (13)
  - ATRIOVENTRICULAR BLOCK COMPLETE [None]
  - CARDIOMYOPATHY [None]
  - CONVULSION [None]
  - CYTOLYTIC HEPATITIS [None]
  - DIZZINESS [None]
  - DRUG LEVEL INCREASED [None]
  - HYPOKALAEMIA [None]
  - LIVER INJURY [None]
  - LOSS OF CONSCIOUSNESS [None]
  - RETINOGRAM ABNORMAL [None]
  - SYNCOPE [None]
  - VENTRICULAR ARRHYTHMIA [None]
  - VISUAL FIELD DEFECT [None]
